FAERS Safety Report 6128151-4 (Version None)
Quarter: 2009Q1

REPORT INFORMATION
  Report Type: 
  Country: None (occurrence: None)
  Receive Date: 20090323
  Receipt Date: 20090309
  Transmission Date: 20090719
  Serious: Yes (Hospitalization, Other)
  Sender: FDA-Public Use
  Company Number: US-ROCHE-596599

PATIENT
  Sex: Female
  Weight: 62.5 kg

DRUGS (2)
  1. CAPECITABINE [Suspect]
     Indication: BREAST CANCER
     Dosage: 14 DAYS ON AND 7 DAYS OFF, 07 TABLETS DAILY
     Route: 065
     Dates: start: 20081001
  2. CAPECITABINE [Suspect]
     Route: 065

REACTIONS (4)
  - DIARRHOEA [None]
  - MALAISE [None]
  - NASAL CONGESTION [None]
  - NEOPLASM RECURRENCE [None]
